FAERS Safety Report 4782526-4 (Version None)
Quarter: 2005Q3

REPORT INFORMATION
  Report Type: 
  Country: None (occurrence: None)
  Receive Date: 20050929
  Receipt Date: 20050218
  Transmission Date: 20060218
  Serious: No
  Sender: FDA-Public Use
  Company Number: 400508

PATIENT
  Age: 83 Year
  Sex: Female

DRUGS (3)
  1. COREG [Suspect]
     Indication: DRUG USE FOR UNKNOWN INDICATION
     Dosage: 6.25MG PER DAY
     Route: 048
     Dates: start: 20050201
  2. VITAMINS [Concomitant]
  3. PLAVIX [Concomitant]

REACTIONS (2)
  - FATIGUE [None]
  - PAIN IN EXTREMITY [None]
